FAERS Safety Report 21850050 (Version 2)
Quarter: 2023Q2

REPORT INFORMATION
  Report Type: Spontaneous
  Country: GB (occurrence: None)
  Receive Date: 20230111
  Receipt Date: 20230427
  Transmission Date: 20230722
  Serious: Yes (Other)
  Sender: FDA-Public Use
  Company Number: 2023A006678

PATIENT
  Sex: Female

DRUGS (8)
  1. FASLODEX [Suspect]
     Active Substance: FULVESTRANT
     Route: 030
  2. LETROZOLE/RIBOCICLIB [Concomitant]
  3. PACLITAXEL [Concomitant]
     Active Substance: PACLITAXEL
  4. CAPECITABINE [Concomitant]
     Active Substance: CAPECITABINE
  5. MORPHINE SULFATE [Concomitant]
     Active Substance: MORPHINE SULFATE
  6. DENOSUMAB [Concomitant]
     Active Substance: DENOSUMAB
  7. SERTRALINE [Concomitant]
     Active Substance: SERTRALINE HYDROCHLORIDE
  8. LANSOPRAZOLE [Concomitant]
     Active Substance: LANSOPRAZOLE

REACTIONS (1)
  - Malignant neoplasm progression [Unknown]
